FAERS Safety Report 19481678 (Version 2)
Quarter: 2021Q3

REPORT INFORMATION
  Report Type: Spontaneous
  Country: BR (occurrence: BR)
  Receive Date: 20210701
  Receipt Date: 20210802
  Transmission Date: 20211014
  Serious: No
  Sender: FDA-Public Use
  Company Number: BR-AMGEN-BRASP2021093488

PATIENT
  Age: 44 Year
  Sex: Female
  Weight: 80.2 kg

DRUGS (4)
  1. NEULASTIM [Suspect]
     Active Substance: PEGFILGRASTIM
     Indication: PRODUCT USED FOR UNKNOWN INDICATION
     Dosage: 6 MICROGRAM
     Route: 065
  2. NEULASTIM [Suspect]
     Active Substance: PEGFILGRASTIM
     Dosage: 6 MICROGRAM
     Route: 065
  3. CYMBI [AMPICILLIN TRIHYDRATE] [Concomitant]
     Dosage: 60 MICROGRAM, QD
  4. ARPADOL [Concomitant]
     Dosage: 400 MICROGRAM, QD

REACTIONS (2)
  - Drug dose omission by device [Unknown]
  - Device malfunction [Unknown]

NARRATIVE: CASE EVENT DATE: 20210608
